FAERS Safety Report 6402461-5 (Version None)
Quarter: 2009Q4

REPORT INFORMATION
  Report Type: 
  Country: None (occurrence: None)
  Receive Date: 20091009
  Receipt Date: 20090930
  Transmission Date: 20100525
  Serious: No
  Sender: FDA-Public Use
  Company Number: ADR34122009

PATIENT
  Age: 46 Year
  Sex: Male

DRUGS (4)
  1. CIPROFLOXACIN [Suspect]
     Indication: EPIDIDYMAL DISORDER
     Dosage: 1 G ORAL
     Route: 048
     Dates: start: 20070703, end: 20070724
  2. PROPRANOLOL [Concomitant]
  3. RAMIPRIL [Concomitant]
  4. SIMVASTATIN [Concomitant]

REACTIONS (1)
  - PODAGRA [None]
